FAERS Safety Report 15738757 (Version 5)
Quarter: 2020Q4

REPORT INFORMATION
  Report Type: Other
  Country: CA (occurrence: CA)
  Receive Date: 20181219
  Receipt Date: 20201204
  Transmission Date: 20210113
  Serious: Yes (Hospitalization)
  Sender: FDA-Public Use
  Company Number: CA-ROCHE-2228838

PATIENT
  Age: 50 Year
  Sex: Female

DRUGS (3)
  1. TOPIRAMATE. [Concomitant]
     Active Substance: TOPIRAMATE
     Indication: PAIN
     Dosage: YES
  2. MYRBETRIQ [Concomitant]
     Active Substance: MIRABEGRON
  3. OCREVUS [Suspect]
     Active Substance: OCRELIZUMAB
     Indication: RELAPSING-REMITTING MULTIPLE SCLEROSIS
     Dosage: 300 MG AT DAY 0 AND 14, THEN 600 MG EVERY 6 MONTH ;ONGOING: YES
     Route: 042
     Dates: start: 20180925

REACTIONS (6)
  - Pyelonephritis acute [Recovered/Resolved]
  - Anaemia of chronic disease [Not Recovered/Not Resolved]
  - Pyrexia [Unknown]
  - Hypertonic bladder [Recovering/Resolving]
  - Acute kidney injury [Recovered/Resolved]
  - Perinephric collection [Not Recovered/Not Resolved]

NARRATIVE: CASE EVENT DATE: 20181201
